FAERS Safety Report 7348075-4 (Version None)
Quarter: 2011Q1

REPORT INFORMATION
  Report Type: 
  Country: None (occurrence: None)
  Receive Date: 20110311
  Receipt Date: 20110308
  Transmission Date: 20110831
  Serious: Yes (Hospitalization)
  Sender: FDA-Public Use
  Company Number: FR-PFIZER INC-2010028520

PATIENT
  Age: 32 Year
  Sex: Male

DRUGS (12)
  1. TENORMIN [Suspect]
     Dosage: UNK
     Route: 048
  2. KAYEXALATE [Concomitant]
  3. CALCIDIA [Concomitant]
  4. AMLOR [Suspect]
     Dosage: UNK
     Route: 048
  5. TAMOXIFEN CITRATE [Suspect]
     Dosage: UNK
     Route: 048
     Dates: start: 20080209, end: 20080303
  6. TIENAM [Suspect]
     Dosage: UNK
     Dates: start: 20080130, end: 20080219
  7. OFLOCET [Suspect]
     Dosage: UNK
     Route: 048
     Dates: start: 20080125, end: 20080127
  8. NEORECORMON ^BOEHRINGER MANNHEIM^ [Concomitant]
     Dosage: UNK
     Route: 058
     Dates: start: 20030901, end: 20080101
  9. SPECIAFOLDINE [Concomitant]
  10. RENAGEL [Concomitant]
  11. TRIATEC [Suspect]
     Dosage: UNK
     Route: 048
  12. VANCOMYCIN [Suspect]
     Dosage: UNK
     Dates: start: 20080127, end: 20080219

REACTIONS (3)
  - LEUKOCYTOSIS [None]
  - APLASTIC ANAEMIA [None]
  - NORMOCHROMIC NORMOCYTIC ANAEMIA [None]
